FAERS Safety Report 13202714 (Version 4)
Quarter: 2018Q4

REPORT INFORMATION
  Report Type: Report from Study
  Country: JP (occurrence: JP)
  Receive Date: 20170209
  Receipt Date: 20181012
  Transmission Date: 20190204
  Serious: Yes (Death)
  Sender: FDA-Public Use
  Company Number: JP-AMGEN-JPNCT2017021201

PATIENT
  Age: 79 Year
  Sex: Female

DRUGS (20)
  1. GASTER [Concomitant]
     Active Substance: FAMOTIDINE
     Indication: CHRONIC GASTRITIS
     Dosage: 40 MG, UNK
     Route: 048
     Dates: start: 20160727, end: 20160822
  2. CALONAL [Concomitant]
     Active Substance: ACETAMINOPHEN
     Indication: VENOUS THROMBOSIS LIMB
     Dosage: 1600 MG, UNK
     Route: 048
     Dates: start: 20150805, end: 20160822
  3. DARBEPOETIN ALFA [Suspect]
     Active Substance: DARBEPOETIN ALFA
     Dosage: 240 MUG, Q2WK
     Route: 058
     Dates: start: 20160406, end: 20160420
  4. MAGLAX [Concomitant]
     Active Substance: MAGNESIUM OXIDE
     Indication: CONSTIPATION
     Dosage: 1500 MG, UNK
     Route: 048
     Dates: start: 20151028, end: 20160217
  5. TRAMCET [Concomitant]
     Active Substance: ACETAMINOPHEN\TRAMADOL
     Indication: PAIN
  6. ROHYPNOL [Concomitant]
     Active Substance: FLUNITRAZEPAM
     Dosage: 20 MG, UNK
     Route: 048
     Dates: start: 20151128, end: 20151128
  7. WYPAX [Concomitant]
     Active Substance: LORAZEPAM
     Dosage: 0.5 MG, UNK
     Route: 048
     Dates: start: 20151128, end: 20151128
  8. MUCOSTA [Concomitant]
     Active Substance: REBAMIPIDE
     Indication: CHRONIC GASTRITIS
     Dosage: 300 MG, UNK
     Route: 048
     Dates: start: 20150826, end: 20160726
  9. NOVAMIN (PROCHLORPERAZINE) [Concomitant]
     Active Substance: PROCHLORPERAZINE
     Indication: NAUSEA
     Dosage: 20 MG, UNK
     Route: 048
     Dates: start: 20160328, end: 20160405
  10. BAYASPIRIN [Concomitant]
     Active Substance: ASPIRIN
     Indication: VENOUS THROMBOSIS LIMB
     Dosage: 100 MG, UNK
     Route: 048
     Dates: start: 20150624, end: 20160822
  11. CELECOX [Concomitant]
     Active Substance: CELECOXIB
     Indication: OSTEOPOROSIS
     Dosage: 200 MG, AS NECESSARY
     Route: 048
     Dates: start: 20160427, end: 20160822
  12. DARBEPOETIN ALFA [Suspect]
     Active Substance: DARBEPOETIN ALFA
     Dosage: 240 MUG, Q2WK
     Route: 058
     Dates: start: 20150930, end: 20160328
  13. MOHRUS [Concomitant]
     Active Substance: KETOPROFEN
     Indication: OSTEOPOROSIS
     Dosage: 20 MG, AS NECESSARY
     Route: 061
     Dates: start: 20150909, end: 20151210
  14. DARBEPOETIN ALFA [Suspect]
     Active Substance: DARBEPOETIN ALFA
     Indication: PRODUCT USED FOR UNKNOWN INDICATION
     Dosage: 240 MUG, QWK
     Route: 058
     Dates: start: 20150729, end: 20150916
  15. DARBEPOETIN ALFA [Suspect]
     Active Substance: DARBEPOETIN ALFA
     Dosage: 240 MUG, QWK
     Route: 058
     Dates: start: 20160427, end: 20160803
  16. DARBEPOETIN ALFA [Suspect]
     Active Substance: DARBEPOETIN ALFA
     Dosage: 240 MUG, UNK
     Route: 058
     Dates: start: 20160817
  17. TRAMCET [Concomitant]
     Active Substance: ACETAMINOPHEN\TRAMADOL
     Indication: OSTEOPOROSIS
     Dosage: UNK
     Route: 048
     Dates: start: 20160316, end: 20160403
  18. DOGMATYL [Concomitant]
     Active Substance: SULPIRIDE
     Dosage: 50 MG, UNK
     Route: 048
     Dates: start: 20151128, end: 20151128
  19. MAGNESIUM OXIDE. [Concomitant]
     Active Substance: MAGNESIUM OXIDE
     Indication: CONSTIPATION
     Dosage: 1500 MG, UNK
     Route: 048
     Dates: start: 20160217, end: 20160614
  20. OXYCONTIN [Concomitant]
     Active Substance: OXYCODONE HYDROCHLORIDE
     Dosage: 10 MG, UNK
     Route: 048
     Dates: start: 20160713, end: 20160822

REACTIONS (17)
  - Fibrin D dimer increased [Fatal]
  - Blood potassium increased [Fatal]
  - Prothrombin time prolonged [Fatal]
  - International normalised ratio increased [Fatal]
  - White blood cell count increased [Fatal]
  - Blood fibrinogen decreased [Fatal]
  - Mean cell haemoglobin increased [Fatal]
  - Prothrombin time ratio decreased [Fatal]
  - Alanine aminotransferase increased [Fatal]
  - Blood lactate dehydrogenase increased [Fatal]
  - Aspartate aminotransferase increased [Fatal]
  - Ammonia increased [Fatal]
  - Cardio-respiratory arrest [Fatal]
  - Amylase increased [Fatal]
  - Activated partial thromboplastin time prolonged [Fatal]
  - Blood urea increased [Fatal]
  - Blood creatine phosphokinase increased [Fatal]

NARRATIVE: CASE EVENT DATE: 20160822
